FAERS Safety Report 7430475-5 (Version None)
Quarter: 2011Q2

REPORT INFORMATION
  Report Type: 
  Country: None (occurrence: None)
  Receive Date: 20110421
  Receipt Date: 20110103
  Transmission Date: 20111010
  Serious: No
  Sender: FDA-Public Use
  Company Number: US-ASTRAZENECA-2011SE00317

PATIENT
  Age: 976 Month
  Sex: Female

DRUGS (3)
  1. ASPIRIN [Concomitant]
  2. METOPROLOL SUCCINATE [Suspect]
     Indication: HYPERTENSION
     Route: 048
  3. ZETIA [Concomitant]

REACTIONS (3)
  - HYPERVENTILATION [None]
  - PALPITATIONS [None]
  - MALAISE [None]
